FAERS Safety Report 6968632-4 (Version None)
Quarter: 2010Q3

REPORT INFORMATION
  Report Type: 
  Country: None (occurrence: None)
  Receive Date: 20100903
  Receipt Date: 20100903
  Transmission Date: 20110219
  Serious: Yes (Hospitalization)
  Sender: FDA-Public Use
  Company Number: None

PATIENT
  Age: 69 Year
  Sex: Female
  Weight: 59 kg

DRUGS (11)
  1. CYCLOPHOSPHAMIDE [Suspect]
     Indication: BREAST CANCER
     Dosage: 951 MG EVERY OTHER WEEK - LAST DOSE IV
     Route: 042
     Dates: start: 20100706
  2. CYCLOPHOSPHAMIDE [Suspect]
     Indication: BREAST CANCER
     Dosage: 951 MG EVERY OTHER WEEK - LAST DOSE IV
     Route: 042
     Dates: start: 20100720
  3. CYCLOPHOSPHAMIDE [Suspect]
     Indication: BREAST CANCER
     Dosage: 951 MG EVERY OTHER WEEK - LAST DOSE IV
     Route: 042
     Dates: start: 20100803
  4. CYCLOPHOSPHAMIDE [Suspect]
     Indication: BREAST CANCER
     Dosage: 951 MG EVERY OTHER WEEK - LAST DOSE IV
     Route: 042
     Dates: start: 20100817
  5. DOXORUBICIN HCL [Suspect]
     Indication: BREAST CANCER
     Dosage: 95 MG EVERY OTHER WEEK - LAST DOSE IV
     Route: 042
     Dates: start: 20100706
  6. DOXORUBICIN HCL [Suspect]
     Indication: BREAST CANCER
     Dosage: 95 MG EVERY OTHER WEEK - LAST DOSE IV
     Route: 042
     Dates: start: 20100720
  7. DOXORUBICIN HCL [Suspect]
     Indication: BREAST CANCER
     Dosage: 95 MG EVERY OTHER WEEK - LAST DOSE IV
     Route: 042
     Dates: start: 20100803
  8. DOXORUBICIN HCL [Suspect]
     Indication: BREAST CANCER
     Dosage: 95 MG EVERY OTHER WEEK - LAST DOSE IV
     Route: 042
     Dates: start: 20100817
  9. AVASTIN [Suspect]
     Indication: BREAST CANCER
     Dosage: 221 MG IV
     Route: 042
     Dates: start: 20100706
  10. AVASTIN [Suspect]
     Indication: BREAST CANCER
     Dosage: 221 MG IV
     Route: 042
     Dates: start: 20100720
  11. AVASTIN [Suspect]
     Indication: BREAST CANCER
     Dosage: 221 MG IV
     Route: 042
     Dates: start: 20100803

REACTIONS (5)
  - FEBRILE NEUTROPENIA [None]
  - HAEMOGLOBIN DECREASED [None]
  - OROPHARYNGEAL PAIN [None]
  - PAIN [None]
  - PLATELET COUNT DECREASED [None]
